FAERS Safety Report 4620369-2 (Version None)
Quarter: 2005Q1

REPORT INFORMATION
  Report Type: 
  Country: None (occurrence: None)
  Receive Date: 20050321
  Receipt Date: 20050321
  Transmission Date: 20050727
  Serious: Yes (Hospitalization)
  Sender: FDA-Public Use
  Company Number: None

PATIENT
  Age: 14 Year
  Sex: Male
  Weight: 43.0917 kg

DRUGS (7)
  1. RISPERDAL [Suspect]
     Indication: INSOMNIA
     Dosage: 0.125MG   DAILY  ORAL
     Route: 048
     Dates: start: 20040213, end: 20040220
  2. RISPERDAL [Concomitant]
  3. SEROQUEL [Concomitant]
  4. ABILIFY [Concomitant]
  5. DEXADRINE [Concomitant]
  6. DEPAKOTE [Concomitant]
  7. LEXAPRO [Concomitant]

REACTIONS (7)
  - ASTHENIA [None]
  - COGWHEEL RIGIDITY [None]
  - DIZZINESS [None]
  - HOT FLUSH [None]
  - HYPERSOMNIA [None]
  - MUSCULOSKELETAL STIFFNESS [None]
  - TREMOR [None]
